FAERS Safety Report 12627223 (Version 6)
Quarter: 2018Q2

REPORT INFORMATION
  Report Type: Spontaneous
  Country: US (occurrence: US)
  Receive Date: 20160805
  Receipt Date: 20180420
  Transmission Date: 20180711
  Serious: No
  Sender: FDA-Public Use
  Company Number: US-INCYTE CORPORATION-2016IN004674

PATIENT

DRUGS (22)
  1. JAKAFI [Suspect]
     Active Substance: RUXOLITINIB
     Dosage: 5 MG, BID
     Route: 048
     Dates: start: 20160711, end: 20160725
  2. JAKAFI [Suspect]
     Active Substance: RUXOLITINIB
     Dosage: 5 MG Q AM/ 10 MG Q PM
     Route: 048
     Dates: start: 20160726, end: 20161003
  3. JAKAFI [Suspect]
     Active Substance: RUXOLITINIB
     Dosage: 10 MG, QD
     Dates: start: 20161019, end: 20161108
  4. PREDNISONE. [Concomitant]
     Active Substance: PREDNISONE
     Indication: BEHCET^S SYNDROME
     Dosage: UNK UNK
     Route: 065
     Dates: end: 2016
  5. CELEXA [Concomitant]
     Active Substance: CITALOPRAM HYDROBROMIDE
     Indication: PRODUCT USED FOR UNKNOWN INDICATION
     Dosage: 20 MG, QD
     Route: 048
  6. IMODIUM [Concomitant]
     Active Substance: LOPERAMIDE HYDROCHLORIDE
     Indication: PRODUCT USED FOR UNKNOWN INDICATION
     Dosage: UNK, PRN
     Route: 048
  7. JAKAFI [Suspect]
     Active Substance: RUXOLITINIB
     Indication: POLYCYTHAEMIA VERA
     Dosage: 15 MG, QD
     Route: 048
     Dates: start: 20160501, end: 20161120
  8. COLCHICINE. [Suspect]
     Active Substance: COLCHICINE
     Indication: PRODUCT USED FOR UNKNOWN INDICATION
     Dosage: UNK UNK,
     Route: 065
  9. INTERFERON ALFA-2A [Concomitant]
     Active Substance: INTERFERON ALFA-2A
     Indication: PRODUCT USED FOR UNKNOWN INDICATION
     Dosage: 1.5 MILLION UNITS, 7 TIMES PER WEEK (1.5 MCG X 10^6)
     Route: 058
  10. PREDNISONE. [Concomitant]
     Active Substance: PREDNISONE
     Indication: MOUTH ULCERATION
     Dosage: 5 MG, QD (ONLY WHEN HAS ULCERS IN MOUTH)
     Route: 048
  11. FLOVENT HFA [Concomitant]
     Active Substance: FLUTICASONE PROPIONATE
     Indication: PRODUCT USED FOR UNKNOWN INDICATION
     Dosage: 110 MCG, UNK
     Route: 050
  12. JAKAFI [Suspect]
     Active Substance: RUXOLITINIB
     Indication: MYELOFIBROSIS
     Dosage: 5 MG, BID
  13. JAKAFI [Suspect]
     Active Substance: RUXOLITINIB
     Dosage: 5 MG, BID
     Route: 048
     Dates: start: 20161004, end: 20161018
  14. NORVASC [Concomitant]
     Active Substance: AMLODIPINE BESYLATE
     Indication: PRODUCT USED FOR UNKNOWN INDICATION
     Dosage: 5 MG, QD
     Route: 048
  15. FLUTICASONE PROPIONATE. [Concomitant]
     Active Substance: FLUTICASONE PROPIONATE
     Indication: PRODUCT USED FOR UNKNOWN INDICATION
     Dosage: 50 MCG, UNK
     Route: 050
  16. PREVACID [Concomitant]
     Active Substance: LANSOPRAZOLE
     Indication: PRODUCT USED FOR UNKNOWN INDICATION
     Dosage: 20 MG, QD
     Route: 048
  17. HYOMAX [Concomitant]
     Active Substance: HYOSCYAMINE SULFATE
     Indication: WEIGHT
     Dosage: UNK, PRN
     Route: 048
  18. JAKAFI [Suspect]
     Active Substance: RUXOLITINIB
     Dosage: 5 MG Q AM/ 10 MG Q PM
     Route: 048
     Dates: start: 20160610, end: 20160710
  19. JAKAFI [Suspect]
     Active Substance: RUXOLITINIB
     Dosage: 5 MG Q AM/ 10 MG Q PM
     Route: 065
  20. ASPIRIN                            /00002701/ [Concomitant]
     Active Substance: ASPIRIN
     Indication: PRODUCT USED FOR UNKNOWN INDICATION
     Dosage: 81 MG, QD
     Route: 048
  21. ATIVAN [Concomitant]
     Active Substance: LORAZEPAM
     Indication: BIOPSY BONE MARROW
     Dosage: 0.5 MG, SINGLE
     Route: 048
     Dates: start: 20160726, end: 20160726
  22. JAKAFI [Suspect]
     Active Substance: RUXOLITINIB
     Dosage: 10 MG QOD
     Dates: start: 20161109, end: 20161115

REACTIONS (29)
  - Wrong technique in product usage process [Unknown]
  - Varicose vein [Unknown]
  - White blood cell count increased [Unknown]
  - Mean cell volume decreased [Unknown]
  - Blood calcium decreased [Unknown]
  - Blood bilirubin increased [Unknown]
  - Oedema peripheral [Unknown]
  - Haematocrit decreased [Unknown]
  - Back pain [Unknown]
  - Leukocytosis [Unknown]
  - Neutrophil count increased [Unknown]
  - Glomerular filtration rate decreased [Unknown]
  - Abdominal distension [Unknown]
  - Therapeutic response unexpected [Unknown]
  - Hepatomegaly [Unknown]
  - Red cell distribution width increased [Unknown]
  - Blood urea increased [Unknown]
  - Haemoglobin decreased [Recovered/Resolved]
  - Anaemia [Unknown]
  - Full blood count abnormal [Recovering/Resolving]
  - Blood creatinine increased [Unknown]
  - Diarrhoea [Unknown]
  - Headache [Not Recovered/Not Resolved]
  - Globulins increased [Unknown]
  - Fatigue [Unknown]
  - Platelet count decreased [Recovered/Resolved]
  - Asthenia [Unknown]
  - Blood alkaline phosphatase increased [Unknown]
  - Splenomegaly [Unknown]

NARRATIVE: CASE EVENT DATE: 2016
